FAERS Safety Report 7285958-8 (Version None)
Quarter: 2011Q1

REPORT INFORMATION
  Report Type: 
  Country: None (occurrence: None)
  Receive Date: 20110210
  Receipt Date: 20110204
  Transmission Date: 20110831
  Serious: Yes (Other)
  Sender: FDA-Public Use
  Company Number: JP-GENZYME-FLUD-1000707

PATIENT
  Age: 2 Year
  Sex: Female

DRUGS (5)
  1. METHOTREXATE [Concomitant]
     Indication: PROPHYLAXIS AGAINST GRAFT VERSUS HOST DISEASE
     Dosage: 7.5 MG/M2, QD ON DAYS -1, -3 AND -6
     Route: 065
  2. FLUDARA [Suspect]
     Indication: STEM CELL TRANSPLANT
     Dosage: 180 MG/M2, UNK
     Route: 065
  3. MELPHALAN [Suspect]
     Indication: STEM CELL TRANSPLANT
     Dosage: 140 MG/M2, UNK
     Route: 065
  4. TACROLIMUS [Concomitant]
     Indication: PROPHYLAXIS AGAINST GRAFT VERSUS HOST DISEASE
     Dosage: 0.02 MG/KG, QD
     Route: 042
  5. ANTITHYMOCYTE IMMUNOGLOBULIN [Suspect]
     Indication: STEM CELL TRANSPLANT

REACTIONS (3)
  - ACUTE GRAFT VERSUS HOST DISEASE [None]
  - BK VIRUS INFECTION [None]
  - CHRONIC GRAFT VERSUS HOST DISEASE [None]
